FAERS Safety Report 11718970 (Version 2)
Quarter: 2015Q4

REPORT INFORMATION
  Report Type: Report from Study
  Country: US (occurrence: US)
  Receive Date: 20151110
  Receipt Date: 20151207
  Transmission Date: 20160304
  Serious: Yes (Death, Hospitalization)
  Sender: FDA-Public Use
  Company Number: US-ACTELION-A-NJ2015-126832

PATIENT
  Age: 29 Year
  Sex: Female

DRUGS (1)
  1. TRACLEER [Suspect]
     Active Substance: BOSENTAN
     Indication: PULMONARY ARTERIAL HYPERTENSION
     Dosage: UNK
     Route: 048
     Dates: start: 20150827, end: 20150927

REACTIONS (3)
  - Fungal endocarditis [Fatal]
  - Sickle cell anaemia with crisis [Unknown]
  - Organ failure [Fatal]

NARRATIVE: CASE EVENT DATE: 20150930
